FAERS Safety Report 7218144-8 (Version None)
Quarter: 2011Q1

REPORT INFORMATION
  Report Type: 
  Country: None (occurrence: None)
  Receive Date: 20110110
  Receipt Date: 20101229
  Transmission Date: 20110831
  Serious: Yes (Death)
  Sender: FDA-Public Use
  Company Number: US-ACTELION-A-US2010-41960

PATIENT

DRUGS (5)
  1. COUMADIN [Concomitant]
  2. REVATIO [Concomitant]
  3. ILOPROST INHALATION SOLUTION UNKNOWN US [Suspect]
     Indication: PULMONARY ARTERIAL HYPERTENSION
     Dosage: 5
     Route: 055
     Dates: start: 20100325
  4. TRACLEER [Suspect]
     Indication: PULMONARY ARTERIAL HYPERTENSION
     Dosage: 125 MG, BID
     Route: 048
     Dates: start: 20050628
  5. TRACLEER [Suspect]
     Dosage: UNK
     Route: 048
     Dates: start: 20050628

REACTIONS (1)
  - RIGHT VENTRICULAR FAILURE [None]
